FAERS Safety Report 8607964-0 (Version None)
Quarter: 2012Q3

REPORT INFORMATION
  Report Type: 
  Country: None (occurrence: None)
  Receive Date: 20120821
  Receipt Date: 20120814
  Transmission Date: 20120928
  Serious: Yes (Other)
  Sender: FDA-Public Use
  Company Number: US-PFIZER INC-2012198966

PATIENT
  Age: 63 Year
  Sex: Female
  Weight: 63.5 kg

DRUGS (2)
  1. ROBITUSSIN COUGH AND CHEST CONGESTION DM [Suspect]
     Indication: RHINORRHOEA
  2. ROBITUSSIN COUGH AND CHEST CONGESTION DM [Suspect]
     Indication: NASOPHARYNGITIS
     Dosage: UNK, 3X/DAY
     Route: 048
     Dates: start: 20120811, end: 20120813

REACTIONS (8)
  - PAIN [None]
  - INFLUENZA LIKE ILLNESS [None]
  - RHINORRHOEA [None]
  - NASOPHARYNGITIS [None]
  - MONOPLEGIA [None]
  - EYE DISORDER [None]
  - MOVEMENT DISORDER [None]
  - PARALYSIS [None]
